FAERS Safety Report 19552370 (Version 8)
Quarter: 2025Q1

REPORT INFORMATION
  Report Type: Report from Study
  Country: CA (occurrence: CA)
  Receive Date: 20210715
  Receipt Date: 20250110
  Transmission Date: 20250409
  Serious: Yes (Other)
  Sender: ROCHE
  Company Number: CA-ROCHE-2867563

PATIENT
  Age: 47 Year
  Sex: Female
  Weight: 108.4 kg

DRUGS (33)
  1. OCREVUS [Suspect]
     Active Substance: OCRELIZUMAB
     Indication: Primary progressive multiple sclerosis
     Dosage: 300 MG AT DAY 0 AND 14, THEN 600 MG EVERY 6 MONTH
     Route: 042
     Dates: start: 20180831
  2. OCREVUS [Suspect]
     Active Substance: OCRELIZUMAB
     Dosage: HER LAST DOSE OF OCRELIZUMAB INFUSION WAS ON 07/JUL/2022.
     Route: 042
  3. OCREVUS [Suspect]
     Active Substance: OCRELIZUMAB
     Route: 042
  4. OCREVUS [Suspect]
     Active Substance: OCRELIZUMAB
     Route: 042
     Dates: start: 20250107
  5. ESCITALOPRAM [Concomitant]
     Active Substance: ESCITALOPRAM OXALATE
  6. LEVETIRACETAM [Concomitant]
     Active Substance: LEVETIRACETAM
  7. CRANBERRY [Concomitant]
     Active Substance: CRANBERRY
  8. PROBIOTICS NOS [Concomitant]
     Active Substance: PROBIOTICS NOS
  9. METHYLPHENIDATE [Concomitant]
     Active Substance: METHYLPHENIDATE
     Dosage: VIA J TUBE
  10. OXYBUTYNIN [Concomitant]
     Active Substance: OXYBUTYNIN
  11. PREGABALIN [Concomitant]
     Active Substance: PREGABALIN
  12. PRAZOSIN [Concomitant]
     Active Substance: PRAZOSIN
  13. DIENOGEST [Concomitant]
     Active Substance: DIENOGEST
  14. MAGNESIUM CITRATE [Concomitant]
     Active Substance: MAGNESIUM CITRATE
  15. METHADONE HYDROCHLORIDE [Concomitant]
     Active Substance: METHADONE HYDROCHLORIDE
  16. HYDROMORPHONE [Concomitant]
     Active Substance: HYDROMORPHONE
  17. LAMOTRIGINE [Concomitant]
     Active Substance: LAMOTRIGINE
  18. NITROFURANTOIN [Concomitant]
     Active Substance: NITROFURANTOIN
  19. OMEGA-3 ACIDS [Concomitant]
     Active Substance: OMEGA-3 FATTY ACIDS
  20. SULFATRIM [Concomitant]
     Active Substance: SULFAMETHOXAZOLE\TRIMETHOPRIM
  21. ZOLMITRIPTAN [Concomitant]
     Active Substance: ZOLMITRIPTAN
  22. WEBBER NATURALS OMEGA-3 [Concomitant]
  23. FUROSEMIDE [Concomitant]
     Active Substance: FUROSEMIDE
  24. JAMIESON PROBIOTIC [Concomitant]
  25. FERROUS FUMARATE [Concomitant]
     Active Substance: FERROUS FUMARATE
  26. PANTOPRAZOLE [Concomitant]
     Active Substance: PANTOPRAZOLE
  27. CRANBERRY ULTRA [Concomitant]
  28. ZOPICLONE [Concomitant]
     Active Substance: ZOPICLONE
  29. TOPIRAMATE [Concomitant]
     Active Substance: TOPIRAMATE
  30. MCT OIL [Concomitant]
  31. CAPRYLIC ACID [Concomitant]
     Active Substance: CAPRYLIC ACID
  32. ZINC [Concomitant]
     Active Substance: ZINC
  33. BIOTIN [Concomitant]
     Active Substance: BIOTIN

REACTIONS (4)
  - Urinary tract infection [Not Recovered/Not Resolved]
  - Urinary tract infection [Not Recovered/Not Resolved]
  - Neuromyelitis optica spectrum disorder [Not Recovered/Not Resolved]
  - Device dislocation [Unknown]

NARRATIVE: CASE EVENT DATE: 20230703
